FAERS Safety Report 9277269 (Version 2)
Quarter: 2013Q2

REPORT INFORMATION
  Report Type: Report from Study
  Country: US (occurrence: US)
  Receive Date: 20130508
  Receipt Date: 20130613
  Transmission Date: 20140414
  Serious: Yes (Hospitalization)
  Sender: FDA-Public Use
  Company Number: US-009507513-1305USA001832

PATIENT
  Age: 63 Year
  Sex: Female
  Weight: 61.5 kg

DRUGS (4)
  1. VORINOSTAT [Suspect]
     Indication: NON-SMALL CELL LUNG CANCER
     Dosage: 100 MG, UNK
     Route: 048
     Dates: start: 20130427, end: 20130501
  2. CISPLATIN [Suspect]
  3. ALIMTA [Suspect]
  4. LISINOPRIL [Concomitant]
     Indication: HYPERTENSION
     Dosage: UNK
     Dates: end: 20130423

REACTIONS (3)
  - Cardiac disorder [Not Recovered/Not Resolved]
  - Brain natriuretic peptide increased [Not Recovered/Not Resolved]
  - Cardiac enzymes increased [Not Recovered/Not Resolved]
